FAERS Safety Report 6774559-3 (Version None)
Quarter: 2010Q2

REPORT INFORMATION
  Report Type: 
  Country: None (occurrence: None)
  Receive Date: 20100617
  Receipt Date: 20100604
  Transmission Date: 20101027
  Serious: No
  Sender: FDA-Public Use
  Company Number: US-B.I. PHARMACEUTICALS,INC./RIDGEFIELD-2010-BP-06313BP

PATIENT
  Age: 87 Year
  Sex: Female

DRUGS (1)
  1. AGGRENOX [Suspect]
     Indication: TRANSIENT ISCHAEMIC ATTACK
     Route: 048
     Dates: start: 20100603, end: 20100603

REACTIONS (3)
  - HEADACHE [None]
  - RETCHING [None]
  - VOMITING [None]
